FAERS Safety Report 8533706-3 (Version None)
Quarter: 2012Q3

REPORT INFORMATION
  Report Type: 
  Country: None (occurrence: None)
  Receive Date: 20120724
  Receipt Date: 20120713
  Transmission Date: 20120928
  Serious: Yes (Hospitalization, Other)
  Sender: FDA-Public Use
  Company Number: US-ASTRAZENECA-2012SE21828

PATIENT
  Age: 63 Year
  Sex: Female
  Weight: 90.7 kg

DRUGS (5)
  1. ASPIRIN [Concomitant]
  2. NEXIUM [Suspect]
     Route: 048
  3. CRESTOR [Suspect]
     Route: 048
  4. METOPROLOL SUCCINATE [Suspect]
     Route: 048
  5. ISOSORBIDE [Concomitant]

REACTIONS (9)
  - CHEST PAIN [None]
  - HYPERLIPIDAEMIA [None]
  - CORONARY OSTIAL STENOSIS [None]
  - COLD SWEAT [None]
  - HYPERTENSION [None]
  - CORONARY ARTERY DISEASE [None]
  - AORTIC ARTERIOSCLEROSIS [None]
  - CORONARY ARTERY STENOSIS [None]
  - HYPOAESTHESIA [None]
